FAERS Safety Report 9243172 (Version 1)
Quarter: 2013Q2

REPORT INFORMATION
  Report Type: Spontaneous
  Country: US (occurrence: US)
  Receive Date: 20130419
  Receipt Date: 20130419
  Transmission Date: 20140414
  Serious: Yes (Other)
  Sender: FDA-Public Use
  Company Number: US-US-EMD SERONO, INC.-7071928

PATIENT
  Age: 34 Year
  Sex: Female

DRUGS (2)
  1. REBIF [Suspect]
     Indication: MULTIPLE SCLEROSIS
     Route: 058
     Dates: start: 20110613
  2. REBIF [Suspect]
     Route: 058
     Dates: start: 20121026

REACTIONS (2)
  - Optic neuritis [Recovered/Resolved]
  - White blood cell count decreased [Recovered/Resolved]
